FAERS Safety Report 18711899 (Version 2)
Quarter: 2021Q1

REPORT INFORMATION
  Report Type: Report from Study
  Country: None (occurrence: US)
  Receive Date: 20210107
  Receipt Date: 20210113
  Transmission Date: 20210419
  Serious: Yes (Hospitalization, Other)
  Sender: FDA-Public Use
  Company Number: US-ABBVIE-20K-163-3566689-00

PATIENT
  Age: 29 Year
  Sex: Female

DRUGS (6)
  1. LEXAPRO [Concomitant]
     Active Substance: ESCITALOPRAM OXALATE
     Indication: ANXIETY
  2. METOPROLOL. [Concomitant]
     Active Substance: METOPROLOL
     Indication: VENTRICULAR TACHYCARDIA
  3. LEXAPRO [Concomitant]
     Active Substance: ESCITALOPRAM OXALATE
     Indication: DEPRESSION
  4. TRAMADOL. [Concomitant]
     Active Substance: TRAMADOL
     Indication: PAIN
  5. ARAVA [Concomitant]
     Active Substance: LEFLUNOMIDE
     Indication: ANKYLOSING SPONDYLITIS
  6. HUMIRA [Suspect]
     Active Substance: ADALIMUMAB
     Indication: ANKYLOSING SPONDYLITIS
     Dosage: CITRATE FREE
     Route: 058
     Dates: start: 202006

REACTIONS (6)
  - Urethral stenosis [Unknown]
  - Urinary tract infection [Unknown]
  - Cystitis [Recovering/Resolving]
  - Post procedural complication [Unknown]
  - Stent placement [Unknown]
  - Kidney infection [Recovering/Resolving]

NARRATIVE: CASE EVENT DATE: 20200923
